FAERS Safety Report 14841817 (Version 1)
Quarter: 2018Q2

REPORT INFORMATION
  Report Type: Spontaneous
  Country: TN (occurrence: TN)
  Receive Date: 20180503
  Receipt Date: 20180503
  Transmission Date: 20180711
  Serious: Yes (Other)
  Sender: FDA-Public Use
  Company Number: TN-SA-2018SA119539

PATIENT
  Age: 53 Year
  Sex: Male

DRUGS (4)
  1. ETHAMBUTOL [Concomitant]
     Active Substance: ETHAMBUTOL HYDROCHLORIDE
     Indication: PULMONARY TUBERCULOSIS
     Dosage: 5 TABLETS PER DAY
     Route: 065
  2. RIFAMPICIN [Suspect]
     Active Substance: RIFAMPIN
     Indication: PULMONARY TUBERCULOSIS
     Dosage: 150 MG 5 TABLETS PER DAY
     Route: 065
  3. ISONIAZID. [Concomitant]
     Active Substance: ISONIAZID
     Indication: PULMONARY TUBERCULOSIS
     Dosage: 5 TABLETS PER DAY
     Route: 065
  4. PYRAZINAMIDE. [Concomitant]
     Active Substance: PYRAZINAMIDE
     Indication: PULMONARY TUBERCULOSIS
     Dosage: 5 TABLETS PER DAY
     Route: 065

REACTIONS (7)
  - Condition aggravated [Recovered/Resolved]
  - Rash [Recovered/Resolved]
  - Rash papular [Recovered/Resolved]
  - Skin plaque [Recovered/Resolved]
  - Epidermal necrosis [Recovered/Resolved]
  - Rash erythematous [Recovered/Resolved]
  - Lichenoid keratosis [Recovered/Resolved]
